FAERS Safety Report 5594104-8 (Version None)
Quarter: 2008Q1

REPORT INFORMATION
  Report Type: 
  Country: None (occurrence: None)
  Receive Date: 20080116
  Receipt Date: 20080107
  Transmission Date: 20080703
  Serious: Yes (Hospitalization)
  Sender: FDA-Public Use
  Company Number: SE-PFIZER INC-2008002462

PATIENT
  Sex: Female

DRUGS (11)
  1. LIPITOR [Suspect]
     Indication: HYPERLIPIDAEMIA
     Route: 048
     Dates: start: 19970101, end: 20070709
  2. BEZAFIBRATE [Suspect]
     Indication: HYPERLIPIDAEMIA
     Route: 048
     Dates: start: 19920101, end: 20070709
  3. BEZAFIBRATE [Suspect]
     Indication: HYPERTRIGLYCERIDAEMIA
  4. OMEPRAZOLE [Concomitant]
  5. FOLACIN [Concomitant]
     Route: 048
  6. WARAN [Concomitant]
     Route: 048
  7. DUROFERON [Concomitant]
     Route: 048
  8. IMPUGAN [Concomitant]
     Route: 048
  9. TRIATEC [Concomitant]
     Route: 048
  10. SPIRONOLACTONE [Concomitant]
     Route: 048
  11. EMCONCOR CHF [Concomitant]
     Route: 048

REACTIONS (2)
  - CONNECTIVE TISSUE DISORDER [None]
  - MUSCULOSKELETAL DISORDER [None]
